FAERS Safety Report 4288606-4 (Version None)
Quarter: 2004Q1

REPORT INFORMATION
  Report Type: 
  Country: None (occurrence: None)
  Receive Date: 20040209
  Receipt Date: 20031205
  Transmission Date: 20041129
  Serious: Yes (Life-Threatening, Hospitalization)
  Sender: FDA-Public Use
  Company Number: FR-GLAXOSMITHKLINE-B0316965A

PATIENT
  Age: 43 Year
  Sex: Male
  Weight: 85 kg

DRUGS (3)
  1. VENTOLIN [Suspect]
     Indication: ASTHMA
     Dosage: 2UNIT PER DAY
     Route: 055
     Dates: start: 20031015, end: 20031015
  2. MEDROL 16 [Concomitant]
     Indication: ASTHMA
  3. FORADIL [Concomitant]
     Indication: ASTHMA
     Dosage: 2CAP PER DAY
     Route: 048

REACTIONS (3)
  - BRONCHOSPASM [None]
  - LOSS OF CONSCIOUSNESS [None]
  - RESPIRATORY ARREST [None]
